FAERS Safety Report 5934285-7 (Version None)
Quarter: 2008Q4

REPORT INFORMATION
  Report Type: 
  Country: None (occurrence: None)
  Receive Date: 20081029
  Receipt Date: 20081017
  Transmission Date: 20090506
  Serious: Yes (Other)
  Sender: FDA-Public Use
  Company Number: PHHY2008AR25084

PATIENT
  Sex: Female

DRUGS (1)
  1. EXFORGE [Suspect]
     Indication: CARDIAC DISORDER
     Dosage: 160 MG, QD
     Dates: start: 20050101

REACTIONS (1)
  - LOWER LIMB FRACTURE [None]
